FAERS Safety Report 19490877 (Version 3)
Quarter: 2021Q3

REPORT INFORMATION
  Report Type: Report from Study
  Country: US (occurrence: US)
  Receive Date: 20210705
  Receipt Date: 20210820
  Transmission Date: 20211014
  Serious: Yes (Hospitalization)
  Sender: FDA-Public Use
  Company Number: US-B.I. PHARMACEUTICALS,INC./RIDGEFIELD-2021-BI-107350

PATIENT
  Age: 81 Year
  Sex: Male

DRUGS (2)
  1. OFEV [Suspect]
     Active Substance: NINTEDANIB
     Indication: IDIOPATHIC PULMONARY FIBROSIS
     Dosage: TWICE A DAY
     Route: 048
     Dates: start: 20210301, end: 20210607
  2. OFEV [Suspect]
     Active Substance: NINTEDANIB
     Indication: INTERSTITIAL LUNG DISEASE

REACTIONS (10)
  - Diarrhoea [Not Recovered/Not Resolved]
  - Illness [Unknown]
  - Diarrhoea [Not Recovered/Not Resolved]
  - Head injury [Unknown]
  - Fall [Recovered/Resolved]
  - Diarrhoea [Unknown]
  - Asthenia [Unknown]
  - Balance disorder [Recovered/Resolved]
  - Haematochezia [Not Recovered/Not Resolved]
  - Rectal haemorrhage [Not Recovered/Not Resolved]

NARRATIVE: CASE EVENT DATE: 20210531
